FAERS Safety Report 13759023 (Version 3)
Quarter: 2018Q2

REPORT INFORMATION
  Report Type: Spontaneous
  Country: JP (occurrence: JP)
  Receive Date: 20170717
  Receipt Date: 20180525
  Transmission Date: 20180711
  Serious: Yes (Hospitalization)
  Sender: FDA-Public Use
  Company Number: JP-ACTELION-A-CH2014-100318

PATIENT
  Age: 55 Year
  Sex: Female
  Weight: 49.5 kg

DRUGS (57)
  1. EPOPROSTENOL ACT [Suspect]
     Active Substance: EPOPROSTENOL
     Dosage: 19.41 NG/KG, PER MIN
     Route: 042
     Dates: start: 20140815
  2. EPOPROSTENOL ACT [Suspect]
     Active Substance: EPOPROSTENOL
     Dosage: 17.9 NG/KG, PER MIN
     Route: 042
     Dates: start: 20170428
  3. REVATIO [Suspect]
     Active Substance: SILDENAFIL CITRATE
     Dosage: 20 MG, QD
     Route: 048
     Dates: start: 20160511, end: 20160523
  4. ADEMPAS [Suspect]
     Active Substance: RIOCIGUAT
     Indication: PULMONARY ARTERIAL HYPERTENSION
     Dosage: 1.5 MG, QD
     Route: 048
     Dates: start: 20150713, end: 20150715
  5. ADEMPAS [Suspect]
     Active Substance: RIOCIGUAT
     Dosage: 7.5 MG, QD
     Route: 048
     Dates: start: 20150811, end: 20160116
  6. CLARITHROMYCIN. [Suspect]
     Active Substance: CLARITHROMYCIN
     Indication: BRONCHIECTASIS
     Dosage: 400 MG, QD
     Route: 048
     Dates: end: 20160525
  7. THEOPHYLLIN [Concomitant]
     Active Substance: THEOPHYLLINE ANHYDROUS
  8. REVATIO [Suspect]
     Active Substance: SILDENAFIL CITRATE
     Dosage: 30 MG, QD
     Route: 048
     Dates: start: 20150713, end: 20150716
  9. REVATIO [Suspect]
     Active Substance: SILDENAFIL CITRATE
     Dosage: 60 MG, QD
     Route: 048
     Dates: start: 20160226, end: 20160412
  10. REVATIO [Suspect]
     Active Substance: SILDENAFIL CITRATE
     Dosage: 40 MG, QD
     Route: 048
     Dates: start: 20161117, end: 20170104
  11. REVATIO [Suspect]
     Active Substance: SILDENAFIL CITRATE
     Dosage: 40 MG, QD
     Route: 048
     Dates: start: 20170117, end: 20170125
  12. SLOW K [Suspect]
     Active Substance: POTASSIUM CHLORIDE
     Indication: HYPOKALAEMIA
     Dosage: 1800 MG, QD
     Route: 048
     Dates: end: 20160525
  13. ZOSYN [Suspect]
     Active Substance: PIPERACILLIN SODIUM\TAZOBACTAM SODIUM
     Indication: PNEUMONIA
     Dosage: UNK
     Route: 042
     Dates: start: 20151015, end: 20151022
  14. SOL-MELCORT [Concomitant]
     Active Substance: METHYLPREDNISOLONE SODIUM SUCCINATE
  15. ADCIRCA [Suspect]
     Active Substance: TADALAFIL
     Dosage: 5 MG, QD
     Route: 048
     Dates: start: 20140502, end: 20140513
  16. ADCIRCA [Suspect]
     Active Substance: TADALAFIL
     Dosage: 5 MG, QD
     Route: 048
     Dates: start: 20170203, end: 20170216
  17. AMBROXOL [Suspect]
     Active Substance: AMBROXOL
     Indication: ASTHMA
     Dosage: 45 MG, QD
     Route: 048
     Dates: start: 20151016, end: 20160525
  18. OXYGEN. [Concomitant]
     Active Substance: OXYGEN
  19. AZITHROMYCIN ANHYDROUS. [Concomitant]
     Active Substance: AZITHROMYCIN ANHYDROUS
  20. EPOPROSTENOL ACT [Suspect]
     Active Substance: EPOPROSTENOL
     Dosage: 14.7 NG/KG, PER MIN
     Route: 042
     Dates: start: 20140627, end: 20140728
  21. OPSUMIT [Suspect]
     Active Substance: MACITENTAN
     Dosage: 2.5 MG, QD
     Route: 048
     Dates: start: 20160725, end: 20170111
  22. REVATIO [Suspect]
     Active Substance: SILDENAFIL CITRATE
     Dosage: 30 MG, QD
     Route: 048
     Dates: start: 20160222, end: 20160225
  23. REVATIO [Suspect]
     Active Substance: SILDENAFIL CITRATE
     Dosage: 20 MG, QD
     Route: 048
     Dates: start: 20160801, end: 20160802
  24. REVATIO [Suspect]
     Active Substance: SILDENAFIL CITRATE
     Dosage: 30 MG, QD
     Route: 048
     Dates: start: 20160803, end: 20161116
  25. FLOLAN [Suspect]
     Active Substance: EPOPROSTENOL SODIUM
     Indication: PULMONARY ARTERIAL HYPERTENSION
     Dosage: 1.1 ML, QD
     Route: 065
     Dates: start: 20170301, end: 20170301
  26. CARBOCISTEINE [Suspect]
     Active Substance: CARBOCYSTEINE
     Indication: ASTHMA
     Dosage: 750 G, QD
     Route: 048
     Dates: start: 20160728, end: 20161221
  27. REBAMIPIDE [Concomitant]
     Active Substance: REBAMIPIDE
  28. SENNOSIDE [Concomitant]
     Active Substance: SENNOSIDES
  29. THEO-DUR [Suspect]
     Active Substance: THEOPHYLLINE ANHYDROUS
     Indication: ASTHMA
     Dosage: 400 G, QD
     Route: 048
     Dates: start: 20151016, end: 20160525
  30. EPOPROSTENOL ACT [Suspect]
     Active Substance: EPOPROSTENOL
     Dosage: 21.1 NG/KG, PER MIN
     Route: 042
     Dates: start: 20170313
  31. ADCIRCA [Suspect]
     Active Substance: TADALAFIL
     Indication: PULMONARY ARTERIAL HYPERTENSION
     Dosage: 40 MG, QD
     Route: 048
     Dates: start: 20140514, end: 20150408
  32. REVATIO [Suspect]
     Active Substance: SILDENAFIL CITRATE
     Dosage: 60 MG, QD
     Route: 048
     Dates: start: 20140429, end: 20150712
  33. CARBOCISTEINE [Suspect]
     Active Substance: CARBOCYSTEINE
     Indication: BRONCHIECTASIS
     Dosage: 1500 MG, QD
     Route: 048
     Dates: end: 20160525
  34. PREDONINE [Suspect]
     Active Substance: PREDNISOLONE
     Indication: ASTHMA
     Dosage: UNK
     Route: 048
     Dates: end: 20160525
  35. EPOPROSTENOL ACT [Suspect]
     Active Substance: EPOPROSTENOL
     Indication: PULMONARY ARTERIAL HYPERTENSION
     Dosage: 9.8 NG/KG, PER MIN
     Route: 042
     Dates: start: 20140528, end: 20140528
  36. EPOPROSTENOL ACT [Suspect]
     Active Substance: EPOPROSTENOL
     Dosage: 18.07 NG/KG, PER MIN
     Route: 042
     Dates: start: 20140729, end: 20140814
  37. XYZAL [Suspect]
     Active Substance: LEVOCETIRIZINE DIHYDROCHLORIDE
     Indication: PRIMARY CILIARY DYSKINESIA
     Dosage: 5 MG, QD
     Route: 048
     Dates: start: 2014, end: 20150115
  38. ADCIRCA [Suspect]
     Active Substance: TADALAFIL
     Dosage: 40 MG, QD
     Route: 048
     Dates: start: 20170217
  39. REVATIO [Suspect]
     Active Substance: SILDENAFIL CITRATE
     Indication: PULMONARY ARTERIAL HYPERTENSION
     Dosage: 40 MG, QD
     Route: 048
     Dates: start: 201109, end: 20140428
  40. REVATIO [Suspect]
     Active Substance: SILDENAFIL CITRATE
     Dosage: 30 MG, QD
     Route: 048
     Dates: start: 20170105, end: 20170116
  41. VOLIBRIS [Suspect]
     Active Substance: AMBRISENTAN
     Indication: PULMONARY ARTERIAL HYPERTENSION
     Dosage: 0.5 MG, BID
     Route: 048
     Dates: start: 20170306, end: 20170308
  42. BROMHEXINE [Suspect]
     Active Substance: BROMHEXINE
     Indication: ASTHMA
     Dosage: 12 MG, QD
     Route: 048
     Dates: start: 20160804
  43. MAGNESIUM OXIDE. [Concomitant]
     Active Substance: MAGNESIUM OXIDE
  44. SYMBICORT [Suspect]
     Active Substance: BUDESONIDE\FORMOTEROL FUMARATE DIHYDRATE
     Indication: BRONCHIECTASIS
     Dosage: UNK
     Route: 055
     Dates: end: 20160823
  45. LEVOFLOXACIN HEMIHYDRATE [Concomitant]
     Active Substance: LEVOFLOXACIN
  46. EPOPROSTENOL ACT [Suspect]
     Active Substance: EPOPROSTENOL
     Dosage: 10.4 NG/KG, PER MIN
     Route: 042
     Dates: start: 20140528
  47. OPSUMIT [Suspect]
     Active Substance: MACITENTAN
     Indication: PULMONARY ARTERIAL HYPERTENSION
     Dosage: 10 MG, QD
     Route: 048
     Dates: start: 20150821, end: 20160630
  48. REVATIO [Suspect]
     Active Substance: SILDENAFIL CITRATE
     Dosage: 40 MG, QD
     Route: 048
     Dates: start: 20160413, end: 20160510
  49. REVATIO [Suspect]
     Active Substance: SILDENAFIL CITRATE
     Dosage: 60 MG, QD
     Route: 048
     Dates: start: 20170126
  50. GASMOTIN [Suspect]
     Active Substance: MOSAPRIDE CITRATE
     Indication: PROPHYLAXIS
     Dosage: 15 MG, UNK
     Route: 048
     Dates: start: 20151016, end: 20160525
  51. BERAPROST [Concomitant]
     Active Substance: BERAPROST
  52. PANCREATIC ENZYMES [Concomitant]
     Active Substance: UNSPECIFIED INGREDIENT
     Indication: PRODUCT USED FOR UNKNOWN INDICATION
  53. EPOPROSTENOL ACT [Suspect]
     Active Substance: EPOPROSTENOL
     Dosage: 0.1 NG/KG, PER MIN
     Route: 042
     Dates: start: 20140429, end: 20140527
  54. TRACLEER [Suspect]
     Active Substance: BOSENTAN
     Indication: PULMONARY ARTERIAL HYPERTENSION
     Route: 048
  55. SINGULAIR [Suspect]
     Active Substance: MONTELUKAST SODIUM
     Indication: PRIMARY CILIARY DYSKINESIA
     Dosage: 10 MG, QD
     Route: 048
     Dates: start: 2014, end: 20150115
  56. RABEPRAZOLE NA [Suspect]
     Active Substance: RABEPRAZOLE SODIUM
     Indication: PROPHYLAXIS
     Dosage: 10 MG, QD
     Route: 065
     Dates: end: 20160525
  57. BERIZYM [Concomitant]
     Active Substance: CELLULASE\DIASTASE\LIPASE

REACTIONS (32)
  - Bronchiectasis [Recovered/Resolved]
  - Eosinophil count increased [Recovered/Resolved]
  - Hiccups [Recovered/Resolved]
  - Catheter site pain [Recovered/Resolved]
  - Catheter site swelling [Recovered/Resolved]
  - Sputum retention [Recovering/Resolving]
  - Eosinophilic oesophagitis [Recovered/Resolved]
  - Hypersensitivity [Unknown]
  - Dyspnoea exertional [Recovering/Resolving]
  - Pain in jaw [Recovering/Resolving]
  - Hot flush [Recovered/Resolved]
  - Abdominal distension [Recovering/Resolving]
  - Pyrexia [Recovered/Resolved]
  - Headache [Recovering/Resolving]
  - Diarrhoea [Recovering/Resolving]
  - Tachycardia [Recovering/Resolving]
  - Episcleritis [Recovering/Resolving]
  - Pneumonia [Recovered/Resolved]
  - Wheezing [Recovered/Resolved]
  - Dyspnoea [Recovered/Resolved]
  - Nausea [Recovered/Resolved]
  - Pharyngeal oedema [Recovered/Resolved]
  - Pneumonia bacterial [Recovered/Resolved]
  - Respiratory distress [Recovered/Resolved]
  - Asthma [Recovered/Resolved]
  - Vomiting [Recovered/Resolved]
  - Eosinophilic pneumonia [Recovered/Resolved]
  - Anaphylactic reaction [Recovered/Resolved]
  - Oxygen saturation decreased [Recovering/Resolving]
  - Hyperhidrosis [Recovered/Resolved]
  - Palpitations [Recovered/Resolved with Sequelae]
  - Drug hypersensitivity [Recovering/Resolving]

NARRATIVE: CASE EVENT DATE: 20140528
